FAERS Safety Report 6829688-2 (Version None)
Quarter: 2010Q3

REPORT INFORMATION
  Report Type: 
  Country: None (occurrence: None)
  Receive Date: 20100709
  Receipt Date: 20070518
  Transmission Date: 20110219
  Serious: No
  Sender: FDA-Public Use
  Company Number: US-PFIZER INC-2007006391

PATIENT
  Sex: Male
  Weight: 104.33 kg

DRUGS (12)
  1. CHANTIX [Suspect]
     Indication: SMOKING CESSATION THERAPY
     Dates: start: 20061225, end: 20070114
  2. PREVACID [Concomitant]
  3. EFFEXOR [Concomitant]
  4. BUSPIRONE HCL [Concomitant]
  5. LIPITOR [Concomitant]
  6. LISINOPRIL [Concomitant]
  7. TOPROL-XL [Concomitant]
  8. IRON [Concomitant]
  9. ZETIA [Concomitant]
  10. OXYCODONE HCL [Concomitant]
  11. ACETYLSALICYLIC ACID [Concomitant]
  12. TAMSULOSIN HCL [Concomitant]

REACTIONS (2)
  - DRUG INEFFECTIVE [None]
  - NO ADVERSE EVENT [None]
